FAERS Safety Report 15168562 (Version 1)
Quarter: 2018Q3

REPORT INFORMATION
  Report Type: Spontaneous
  Country: US (occurrence: US)
  Receive Date: 20180719
  Receipt Date: 20180719
  Transmission Date: 20181010
  Serious: Yes (Hospitalization, Other)
  Sender: FDA-Public Use
  Company Number: US-BEH-2018092812

PATIENT
  Age: 56 Year
  Sex: Male
  Weight: 157.37 kg

DRUGS (26)
  1. FLECAINIDE ACETATE. [Concomitant]
     Active Substance: FLECAINIDE ACETATE
  2. AZOPT [Concomitant]
     Active Substance: BRINZOLAMIDE
  3. VITAMIN B?6 [Concomitant]
     Active Substance: PYRIDOXINE
  4. ZEMAIRA [Suspect]
     Active Substance: .ALPHA.1-PROTEINASE INHIBITOR HUMAN
     Indication: SLEEP APNOEA SYNDROME
     Dosage: 60 MG/KG, QW
     Route: 042
     Dates: start: 20050927
  5. AUGMENTIN [Concomitant]
     Active Substance: AMOXICILLIN\CLAVULANATE POTASSIUM
  6. PULMICORT TURBUHALER [Concomitant]
     Active Substance: BUDESONIDE
  7. DOXYCYCLINE MONOHYDRATE [Concomitant]
     Active Substance: DOXYCYCLINE
  8. DIPHENHYDRAMINE. [Concomitant]
     Active Substance: DIPHENHYDRAMINE
  9. HEPARIN [Concomitant]
     Active Substance: HEPARIN SODIUM
  10. VALSARTAN/HYDROCHLOROTHIAZIDE [Concomitant]
     Active Substance: HYDROCHLOROTHIAZIDE\VALSARTAN
  11. PROAIR HFA [Concomitant]
     Active Substance: ALBUTEROL SULFATE
  12. DILTIAZEM. [Concomitant]
     Active Substance: DILTIAZEM
  13. NAPROXEN. [Concomitant]
     Active Substance: NAPROXEN
  14. DIOVAN [Concomitant]
     Active Substance: VALSARTAN
  15. VITAMIN B12 [Concomitant]
     Active Substance: CYANOCOBALAMIN
  16. LATANOPROST. [Concomitant]
     Active Substance: LATANOPROST
  17. SIMVASTATIN. [Concomitant]
     Active Substance: SIMVASTATIN
  18. ASPIRIN. [Concomitant]
     Active Substance: ASPIRIN
  19. ZEMAIRA [Suspect]
     Active Substance: .ALPHA.1-PROTEINASE INHIBITOR HUMAN
     Dosage: UNK
     Route: 042
  20. EPINEPHRINE. [Concomitant]
     Active Substance: EPINEPHRINE
  21. TESTOSTERONE. [Concomitant]
     Active Substance: TESTOSTERONE
  22. PRADAXA [Concomitant]
     Active Substance: DABIGATRAN ETEXILATE MESYLATE
  23. BRIMONIDINE TARTRATE. [Concomitant]
     Active Substance: BRIMONIDINE TARTRATE
  24. SODIUM CHLORIDE. [Concomitant]
     Active Substance: SODIUM CHLORIDE
  25. LMX                                /00033401/ [Concomitant]
  26. FOLIC ACID. [Concomitant]
     Active Substance: FOLIC ACID

REACTIONS (2)
  - Pneumonia [Recovered/Resolved]
  - Atrial fibrillation [Recovered/Resolved]

NARRATIVE: CASE EVENT DATE: 20180708
